FAERS Safety Report 18643835 (Version 2)
Quarter: 2021Q2

REPORT INFORMATION
  Report Type: Report from Study
  Country: US (occurrence: US)
  Receive Date: 20201221
  Receipt Date: 20210428
  Transmission Date: 20210717
  Serious: Yes (Other)
  Sender: FDA-Public Use
  Company Number: US-JNJFOC-20201226589

PATIENT
  Age: 28 Year
  Sex: Male
  Weight: 127.12 kg

DRUGS (15)
  1. SPRAVATO [Suspect]
     Active Substance: ESKETAMINE
     Dates: start: 20200210, end: 20200210
  2. SPRAVATO [Suspect]
     Active Substance: ESKETAMINE
     Dosage: 42MG, 10 TOTAL DOSES
     Dates: start: 20200820, end: 20201112
  3. TRILEPTAL [Concomitant]
     Active Substance: OXCARBAZEPINE
     Dates: start: 202104
  4. SPRAVATO [Suspect]
     Active Substance: ESKETAMINE
     Dosage: 42MG, 7 TOTAL DOSES
     Dates: start: 20200218, end: 20200415
  5. L?THYROXINE [LEVOTHYROXINE] [Concomitant]
     Active Substance: LEVOTHYROXINE
     Indication: HYPOTHYROIDISM
  6. TESTOSTERONE CYPIONATE. [Concomitant]
     Active Substance: TESTOSTERONE CYPIONATE
     Route: 058
  7. SPRAVATO [Suspect]
     Active Substance: ESKETAMINE
     Dates: start: 20201124, end: 20201124
  8. SPRAVATO [Suspect]
     Active Substance: ESKETAMINE
     Dates: start: 20200818, end: 20200818
  9. XANAX [Concomitant]
     Active Substance: ALPRAZOLAM
     Indication: ANXIETY
  10. TRILEPTAL [Concomitant]
     Active Substance: OXCARBAZEPINE
     Indication: SEIZURE
  11. SPRAVATO [Suspect]
     Active Substance: ESKETAMINE
     Indication: DEPRESSION
     Dates: start: 20200130, end: 20200130
  12. SPRAVATO [Suspect]
     Active Substance: ESKETAMINE
     Dates: start: 20200203, end: 20200203
  13. SPRAVATO [Suspect]
     Active Substance: ESKETAMINE
     Dates: start: 20200206, end: 20200206
  14. SPRAVATO [Suspect]
     Active Substance: ESKETAMINE
     Dates: start: 20201119, end: 20201119
  15. SPRAVATO [Suspect]
     Active Substance: ESKETAMINE
     Dates: start: 20201201, end: 20201201

REACTIONS (1)
  - Petit mal epilepsy [Recovered/Resolved]

NARRATIVE: CASE EVENT DATE: 20201202
